FAERS Safety Report 4596957-9 (Version None)
Quarter: 2005Q1

REPORT INFORMATION
  Report Type: 
  Country: None (occurrence: None)
  Receive Date: 20050302
  Receipt Date: 20050223
  Transmission Date: 20050727
  Serious: Yes (Hospitalization)
  Sender: FDA-Public Use
  Company Number: US-ABBOTT-05P-163-0291796-00

PATIENT
  Sex: Male
  Weight: 100 kg

DRUGS (1)
  1. TRICOR [Suspect]
     Indication: BLOOD CHOLESTEROL INCREASED
     Route: 048
     Dates: start: 19990901, end: 20000301

REACTIONS (3)
  - DYSGEUSIA [None]
  - RENAL FAILURE [None]
  - VOMITING [None]
